FAERS Safety Report 8990526 (Version 1)
Quarter: 2012Q4

REPORT INFORMATION
  Report Type: 
  Country: US (occurrence: US)
  Receive Date: 20121228
  Receipt Date: 20121228
  Transmission Date: 20130627
  Serious: Yes (Hospitalization)
  Sender: FDA-Public Use
  Company Number: US-GLAXOSMITHKLINE-A1006554A

PATIENT
  Age: 27 Year
  Sex: Female

DRUGS (1)
  1. BENLYSTA [Suspect]
     Indication: PRODUCT USED FOR UNKNOWN INDICATION
     Route: 042
     Dates: start: 20121126

REACTIONS (15)
  - Wheezing [Unknown]
  - Dyspnoea [Unknown]
  - Cough [Unknown]
  - Headache [Unknown]
  - Vomiting [Unknown]
  - Diarrhoea [Unknown]
  - Night sweats [Unknown]
  - Chills [Unknown]
  - Pain [Unknown]
  - Joint swelling [Unknown]
  - Pyrexia [Unknown]
  - Productive cough [Unknown]
  - Abdominal pain [Unknown]
  - White blood cell count decreased [Unknown]
  - Anxiety [Unknown]
